FAERS Safety Report 4776489-5 (Version None)
Quarter: 2005Q3

REPORT INFORMATION
  Report Type: 
  Country: None (occurrence: None)
  Receive Date: 20050915
  Receipt Date: 20050831
  Transmission Date: 20060218
  Serious: Yes (Hospitalization)
  Sender: FDA-Public Use
  Company Number: DSA_26944_2005

PATIENT
  Age: 79 Year
  Sex: Female

DRUGS (6)
  1. LORAZEPAM [Suspect]
     Dosage: 1 MG Q DAY PO
     Route: 048
     Dates: end: 20050630
  2. BUFLOMEDIL HYDROCHLORIDE [Suspect]
     Dosage: 300 MG Q DAY PO
     Route: 048
     Dates: end: 20050630
  3. FURADANTIN [Suspect]
     Dosage: 100 MG Q DAY PO
     Route: 048
     Dates: end: 20050630
  4. MEDIATOR [Suspect]
     Dosage: 2 TAB Q DAY PO
     Route: 048
     Dates: end: 20050630
  5. PARIET [Suspect]
     Dosage: 20 MG Q DAY PO
     Route: 048
     Dates: end: 20050630
  6. PREVISCAN [Suspect]
     Dosage: 1 TAB Q DAY PO
     Route: 048
     Dates: end: 20050630

REACTIONS (4)
  - BONE MARROW MYELOGRAM ABNORMAL [None]
  - MYELODYSPLASTIC SYNDROME [None]
  - PANCYTOPENIA [None]
  - REFRACTORY ANAEMIA [None]
